FAERS Safety Report 12980619 (Version 4)
Quarter: 2017Q1

REPORT INFORMATION
  Report Type: Report from Study
  Country: US (occurrence: US)
  Receive Date: 20161128
  Receipt Date: 20170307
  Transmission Date: 20170428
  Serious: Yes (Other)
  Sender: FDA-Public Use
  Company Number: US-ACTELION-A-US2016-135062

PATIENT
  Age: 83 Year
  Sex: Female
  Weight: 56.24 kg

DRUGS (3)
  1. SILDENAFIL. [Concomitant]
     Active Substance: SILDENAFIL
  2. ADCIRCA [Concomitant]
     Active Substance: TADALAFIL
  3. TRACLEER [Suspect]
     Active Substance: BOSENTAN
     Indication: PULMONARY ARTERIAL HYPERTENSION
     Dosage: 125 MG, BID
     Route: 048
     Dates: start: 20160325

REACTIONS (22)
  - Gait disturbance [Unknown]
  - Muscle strain [Unknown]
  - Abdominal distension [Unknown]
  - Pneumonia [Unknown]
  - Scleroderma [Unknown]
  - Myalgia [Unknown]
  - Hyponatraemia [Unknown]
  - Swelling [Unknown]
  - Restless legs syndrome [Unknown]
  - Sneezing [Unknown]
  - Diarrhoea [Unknown]
  - Dyspnoea [Unknown]
  - Pruritus [Unknown]
  - Lethargy [Unknown]
  - Pulmonary fibrosis [Unknown]
  - Constipation [Unknown]
  - Chills [Unknown]
  - Oedema peripheral [Recovering/Resolving]
  - Vulvovaginal mycotic infection [Unknown]
  - Neuropathy peripheral [Unknown]
  - Balance disorder [Unknown]
  - Muscle spasms [Unknown]
